FAERS Safety Report 9181901 (Version 1)
Quarter: 2013Q1

REPORT INFORMATION
  Report Type: Spontaneous
  Country: US (occurrence: US)
  Receive Date: 20130322
  Receipt Date: 20130322
  Transmission Date: 20140127
  Serious: Yes (Other)
  Sender: FDA-Public Use
  Company Number: US-PFIZER INC-2013091447

PATIENT
  Age: 58 Year
  Sex: Female
  Weight: 63 kg

DRUGS (3)
  1. PREMARIN [Suspect]
     Dosage: UNK
  2. EFFEXOR [Suspect]
     Dosage: UNK
  3. DIAZEPAM [Concomitant]
     Dosage: 10 MG, UNK

REACTIONS (4)
  - Pneumonia [Unknown]
  - Sensory disturbance [Unknown]
  - Paraesthesia [Unknown]
  - Hypoaesthesia [Unknown]
